FAERS Safety Report 16238678 (Version 1)
Quarter: 2019Q2

REPORT INFORMATION
  Report Type: Report from Study
  Country: US (occurrence: US)
  Receive Date: 20190425
  Receipt Date: 20190425
  Transmission Date: 20190711
  Serious: Yes (Hospitalization, Other)
  Sender: FDA-Public Use
  Company Number: US-AEGERION PHARMACEUTICAL, INC-AEGR000011

PATIENT
  Age: 48 Year
  Sex: Female
  Weight: 55.3 kg

DRUGS (18)
  1. CRESTOR [Concomitant]
     Active Substance: ROSUVASTATIN CALCIUM
     Indication: BLOOD CHOLESTEROL INCREASED
     Dosage: 40 MG, QD
     Route: 048
     Dates: start: 200402
  2. FATTY ACIDS NOS [Concomitant]
     Indication: NUTRITIONAL SUPPLEMENTATION
     Dosage: 1 TABLET, QD
     Route: 048
     Dates: start: 20080502
  3. POTASSIUM CHLORIDE. [Concomitant]
     Active Substance: POTASSIUM CHLORIDE
     Indication: ELECTROLYTE SUBSTITUTION THERAPY
     Dosage: 10 MEQ, QD
     Route: 048
     Dates: start: 20101024, end: 20120203
  4. LOMITAPIDE [Suspect]
     Active Substance: LOMITAPIDE MESYLATE
     Dosage: 20 MG, QD
     Route: 048
     Dates: start: 20120302, end: 20120404
  5. ASPIRIN. [Concomitant]
     Active Substance: ASPIRIN
     Indication: ANTICOAGULANT THERAPY
     Dosage: 81 MG, QD
     Route: 048
     Dates: start: 1993, end: 20120203
  6. LOMITAPIDE [Suspect]
     Active Substance: LOMITAPIDE MESYLATE
     Dosage: 60 MG, QD
     Route: 048
     Dates: start: 20120611
  7. LEVONORGESTREL. [Concomitant]
     Active Substance: LEVONORGESTREL
     Indication: MENSTRUATION IRREGULAR
     Dosage: 20 MCG, QD
     Route: 015
     Dates: start: 20110706
  8. MAGNESIUM OXIDE. [Concomitant]
     Active Substance: MAGNESIUM OXIDE
     Indication: ELECTROLYTE IMBALANCE
     Dosage: 400 MG, BID
     Route: 048
     Dates: start: 20101104
  9. VITAMIN K [Concomitant]
     Active Substance: PHYTONADIONE
     Indication: ANTICOAGULANT THERAPY
     Dosage: 100 MCG, QD
     Route: 048
     Dates: start: 20110713
  10. ZETIA [Concomitant]
     Active Substance: EZETIMIBE
     Indication: BLOOD CHOLESTEROL INCREASED
     Dosage: 10 MG, QD
     Route: 048
     Dates: start: 200402
  11. LISINOPRIL. [Concomitant]
     Active Substance: LISINOPRIL
     Indication: BLOOD PRESSURE MANAGEMENT
     Dosage: 5 MG, QD
     Route: 048
     Dates: start: 20101104
  12. IRON [Concomitant]
     Active Substance: IRON
     Indication: ANAEMIA
     Dosage: 325 MG, BID
     Route: 048
     Dates: start: 1993
  13. POTASSIUM CHLORIDE. [Concomitant]
     Active Substance: POTASSIUM CHLORIDE
     Dosage: 10 MEQ, QD
     Route: 048
     Dates: start: 20120221
  14. LOMITAPIDE [Suspect]
     Active Substance: LOMITAPIDE MESYLATE
     Indication: TYPE IIA HYPERLIPIDAEMIA
     Dosage: 60 MG, QD
     Route: 048
     Dates: start: 20080811, end: 20120202
  15. LOMITAPIDE [Suspect]
     Active Substance: LOMITAPIDE MESYLATE
     Dosage: 40 MG, QD
     Route: 048
     Dates: start: 20120405, end: 20120610
  16. VITAMIN E [Concomitant]
     Active Substance: .ALPHA.-TOCOPHEROL
     Indication: NUTRITIONAL SUPPLEMENTATION
     Dosage: 400 IU, QD
     Route: 048
     Dates: start: 20080502
  17. COUMADIN [Concomitant]
     Active Substance: WARFARIN SODIUM
     Dosage: 4 MG, QD
     Route: 048
     Dates: start: 20120202
  18. COUMADIN [Concomitant]
     Active Substance: WARFARIN SODIUM
     Indication: ANTICOAGULANT THERAPY
     Dosage: (2, 2.5 OR 3 MG)
     Route: 048
     Dates: start: 2001, end: 20120202

REACTIONS (1)
  - Cerebrovascular accident [Recovering/Resolving]

NARRATIVE: CASE EVENT DATE: 20120203
